FAERS Safety Report 21042530 (Version 1)
Quarter: 2022Q3

REPORT INFORMATION
  Report Type: Spontaneous
  Country: US (occurrence: None)
  Receive Date: 20220702
  Receipt Date: 20220702
  Transmission Date: 20221027
  Serious: Yes (Other)
  Sender: FDA-Public Use
  Company Number: None

PATIENT
  Age: 47 Year
  Sex: Male
  Weight: 78.75 kg

DRUGS (3)
  1. PAXLOVID [Suspect]
     Active Substance: NIRMATRELVIR\RITONAVIR
     Indication: COVID-19
     Dosage: FREQUENCY : TWICE A DAY;?
     Route: 048
     Dates: start: 20220630
  2. MELATONIN [Concomitant]
     Active Substance: MELATONIN
     Dates: start: 20220629
  3. ADVIL [Concomitant]
     Active Substance: IBUPROFEN
     Dates: start: 20220630

REACTIONS (1)
  - Hyperaesthesia [None]

NARRATIVE: CASE EVENT DATE: 20220702
